FAERS Safety Report 9239337 (Version 1)
Quarter: 2013Q2

REPORT INFORMATION
  Report Type: Spontaneous
  Country: US (occurrence: US)
  Receive Date: 20130418
  Receipt Date: 20130418
  Transmission Date: 20140414
  Serious: Yes (Other)
  Sender: FDA-Public Use
  Company Number: CHPA2013US006450

PATIENT
  Age: 67 Year
  Sex: Female

DRUGS (3)
  1. EXCEDRIN TENSION HEADACHE [Suspect]
     Indication: MUSCULOSKELETAL DISCOMFORT
     Dosage: 1 DF, UNK
  2. EXCEDRIN PM [Suspect]
     Indication: INSOMNIA
  3. ACETAMINOPHEN [Concomitant]

REACTIONS (6)
  - Joint injury [Not Recovered/Not Resolved]
  - Back disorder [Not Recovered/Not Resolved]
  - Off label use [Unknown]
  - Therapeutic response unexpected [Unknown]
  - Expired drug administered [Unknown]
  - Incorrect dose administered [Unknown]
